FAERS Safety Report 8605022-2 (Version None)
Quarter: 2012Q3

REPORT INFORMATION
  Report Type: 
  Country: None (occurrence: None)
  Receive Date: 20120820
  Receipt Date: 20120629
  Transmission Date: 20120928
  Serious: Yes (Hospitalization)
  Sender: FDA-Public Use
  Company Number: JP-009507513-1208JPN006993

PATIENT

DRUGS (17)
  1. PEG-INTRON [Suspect]
     Dosage: 70G/KG/WEEK
     Route: 058
     Dates: start: 20120516, end: 20120516
  2. REBETOL [Suspect]
     Route: 048
     Dates: start: 20120606, end: 20120615
  3. DETOMEFAN [Concomitant]
     Dosage: IT IS SINGLE USE DURING 30MG/DAY.
     Route: 048
     Dates: start: 20120503, end: 20120510
  4. PEG-INTRON [Suspect]
     Indication: HEPATITIS C
     Dosage: 1.2G/KG/WEEK
     Route: 058
     Dates: start: 20120502, end: 20120509
  5. URSO 250 [Concomitant]
     Indication: HEPATITIS C
     Route: 048
  6. VITAMIN E [Concomitant]
     Indication: HYPERLIPIDAEMIA
     Route: 048
  7. REBETOL [Suspect]
     Indication: HEPATITIS C
     Route: 048
     Dates: start: 20120502, end: 20120524
  8. TALION (BEPOTASTINE BESYLATE) [Concomitant]
     Indication: PROPHYLAXIS
     Route: 048
  9. MARZULENE-S [Concomitant]
     Indication: PROPHYLAXIS
     Route: 048
     Dates: start: 20120501
  10. HUSCODE [Concomitant]
     Route: 048
     Dates: start: 20120503, end: 20120503
  11. TELAVIC [Suspect]
     Route: 048
     Dates: start: 20120606, end: 20120615
  12. GLAKAY [Concomitant]
     Indication: OSTEOPOROSIS
     Route: 048
  13. MENTAX [Concomitant]
     Indication: PROPHYLAXIS
     Route: 061
     Dates: start: 20120503
  14. PEG-INTRON [Suspect]
     Dosage: 80G/KG/WEEK
     Route: 058
     Dates: start: 20120523, end: 20120613
  15. REBETOL [Suspect]
     Route: 048
     Dates: start: 20120525, end: 20120606
  16. TELAVIC [Suspect]
     Indication: HEPATITIS C
     Route: 048
     Dates: start: 20120502, end: 20120606
  17. VOLTAREN-XR [Concomitant]
     Indication: PROPHYLAXIS
     Route: 048
     Dates: start: 20120501

REACTIONS (2)
  - SKIN DISORDER [None]
  - HAEMOGLOBIN DECREASED [None]
